FAERS Safety Report 9918640 (Version 2)
Quarter: 2014Q1

REPORT INFORMATION
  Report Type: Report from Study
  Country: JP (occurrence: JP)
  Receive Date: 20140224
  Receipt Date: 20140318
  Transmission Date: 20141002
  Serious: Yes (Hospitalization)
  Sender: FDA-Public Use
  Company Number: JP-BRISTOL-MYERS SQUIBB COMPANY-20241964

PATIENT
  Age: 83 Year
  Sex: Male
  Weight: 57 kg

DRUGS (5)
  1. ELIQUIS [Suspect]
     Indication: THROMBOSIS PROPHYLAXIS
     Route: 048
     Dates: start: 20131225, end: 20140124
  2. VASOLAN [Concomitant]
     Indication: ATRIAL FIBRILLATION
     Route: 048
  3. MAINTATE [Concomitant]
     Indication: ATRIAL FIBRILLATION
     Route: 048
  4. MUCOSOLVAN [Concomitant]
     Indication: INTERSTITIAL LUNG DISEASE
     Route: 048
  5. DIART [Concomitant]
     Indication: CARDIAC FAILURE
     Route: 048

REACTIONS (4)
  - Haematochezia [Recovered/Resolved]
  - Large intestinal ulcer [Recovered/Resolved]
  - Colitis ischaemic [Recovered/Resolved]
  - Renal impairment [Recovered/Resolved]
